FAERS Safety Report 8463025-5 (Version None)
Quarter: 2012Q2

REPORT INFORMATION
  Report Type: 
  Country: None (occurrence: None)
  Receive Date: 20120625
  Receipt Date: 20100721
  Transmission Date: 20120825
  Serious: Yes (Other)
  Sender: FDA-Public Use
  Company Number: US-ROCHE-717017

PATIENT
  Age: 58 Year
  Sex: Female

DRUGS (3)
  1. BONIVA [Suspect]
     Indication: OSTEOPOROSIS
     Route: 048
  2. NIACIN [Concomitant]
  3. OS-CAL +D [Concomitant]

REACTIONS (3)
  - FOOT FRACTURE [None]
  - CHEST DISCOMFORT [None]
  - PAIN IN EXTREMITY [None]
